FAERS Safety Report 4882019-X (Version None)
Quarter: 2006Q1

REPORT INFORMATION
  Report Type: 
  Country: None (occurrence: None)
  Receive Date: 20060112
  Receipt Date: 20060103
  Transmission Date: 20060701
  Serious: Yes (Hospitalization)
  Sender: FDA-Public Use
  Company Number: 2005-04964

PATIENT
  Age: 38 Year
  Sex: Female
  Weight: 81.6 kg

DRUGS (4)
  1. LEVORA 0.15/30-28 [Suspect]
     Indication: CONTRACEPTION
     Dosage: 1 TABLET DAILY (SKIP PLACEBO) ORAL
     Route: 048
     Dates: start: 20051101, end: 20051228
  2. SYNTHROID [Concomitant]
  3. WARFARIN SODIUM [Concomitant]
  4. IRON [Concomitant]

REACTIONS (7)
  - BLOOD OESTROGEN ABNORMAL [None]
  - HOUSE DUST ALLERGY [None]
  - HYPOTHYROIDISM [None]
  - JOINT SWELLING [None]
  - LOCAL SWELLING [None]
  - SWELLING FACE [None]
  - URTICARIA GENERALISED [None]
